FAERS Safety Report 6401991-X (Version None)
Quarter: 2009Q4

REPORT INFORMATION
  Report Type: 
  Country: None (occurrence: None)
  Receive Date: 20091015
  Receipt Date: 20091013
  Transmission Date: 20100525
  Serious: Yes (Hospitalization)
  Sender: FDA-Public Use
  Company Number: A0811305A

PATIENT
  Age: 50 Year
  Sex: Female

DRUGS (3)
  1. ALLI [Suspect]
     Indication: DRUG USE FOR UNKNOWN INDICATION
     Route: 048
  2. SIMVASTATIN [Concomitant]
     Indication: BLOOD CHOLESTEROL INCREASED
  3. ZETIA [Concomitant]

REACTIONS (6)
  - ABDOMINAL PAIN LOWER [None]
  - DIVERTICULAR PERFORATION [None]
  - DIVERTICULITIS [None]
  - FOOD POISONING [None]
  - INCISION SITE PAIN [None]
  - INTESTINAL CYST [None]
